FAERS Safety Report 5050908-1 (Version None)
Quarter: 2006Q3

REPORT INFORMATION
  Report Type: 
  Country: None (occurrence: None)
  Receive Date: 20060710
  Receipt Date: 20060626
  Transmission Date: 20061208
  Serious: Yes (Life-Threatening, Other)
  Sender: FDA-Public Use
  Company Number: TN-2006-009780

PATIENT
  Age: 61 Year
  Sex: Male
  Weight: 96 kg

DRUGS (1)
  1. SOTALOL HYDROCHLORIDE [Suspect]
     Indication: ARRHYTHMIA
     Dosage: 2 TAB(S), 1X/DAY, ORAL
     Route: 048
     Dates: start: 20010101, end: 20060420

REACTIONS (6)
  - ABDOMINAL PAIN [None]
  - EOSINOPHIL COUNT INCREASED [None]
  - HYDROCELE [None]
  - INFERTILITY [None]
  - RENAL COLIC [None]
  - RETROPERITONEAL FIBROSIS [None]
